FAERS Safety Report 12189734 (Version 3)
Quarter: 2016Q2

REPORT INFORMATION
  Report Type: Spontaneous
  Country: US (occurrence: US)
  Receive Date: 20160318
  Receipt Date: 20160513
  Transmission Date: 20160815
  Serious: Yes (Death)
  Sender: FDA-Public Use
  Company Number: US-PFIZER INC-2016153673

PATIENT
  Sex: Female

DRUGS (1)
  1. LIPITOR [Suspect]
     Active Substance: ATORVASTATIN CALCIUM
     Dosage: 40 MG, UNK

REACTIONS (1)
  - Cerebrovascular accident [Fatal]
